FAERS Safety Report 6556049-6 (Version None)
Quarter: 2010Q1

REPORT INFORMATION
  Report Type: 
  Country: None (occurrence: None)
  Receive Date: 20100128
  Receipt Date: 20090303
  Transmission Date: 20100710
  Serious: Yes (Hospitalization)
  Sender: FDA-Public Use
  Company Number: US-TEVA-186693USA

PATIENT
  Sex: Male

DRUGS (8)
  1. COPAXONE [Suspect]
     Indication: MULTIPLE SCLEROSIS
     Route: 058
     Dates: start: 20080318
  2. GABAPENTIN [Concomitant]
  3. AMANTADINE HCL [Concomitant]
  4. TOLTERODINE TARTRATE [Concomitant]
  5. METFORMIN [Concomitant]
  6. SERTRALINE HCL [Concomitant]
  7. PRAVASTATIN SODIUM [Concomitant]
  8. BACLOFEN [Concomitant]

REACTIONS (2)
  - PANCREATITIS [None]
  - PNEUMONIA [None]
